APPROVED DRUG PRODUCT: PROGESTERONE
Active Ingredient: PROGESTERONE
Strength: 50MG/ML
Dosage Form/Route: INJECTABLE;INJECTION
Application: A091033 | Product #001 | TE Code: AO
Applicant: HIKMA FARMACEUTICA (PORTUGAL) SA
Approved: Oct 28, 2010 | RLD: No | RS: No | Type: RX